FAERS Safety Report 10015163 (Version 2)
Quarter: 2014Q1

REPORT INFORMATION
  Report Type: Spontaneous
  Country: US (occurrence: US)
  Receive Date: 20140317
  Receipt Date: 20140317
  Transmission Date: 20141002
  Serious: No
  Sender: FDA-Public Use
  Company Number: US-GILEAD-2012-0057835

PATIENT
  Sex: Male

DRUGS (2)
  1. LETAIRIS [Suspect]
     Indication: PRODUCT USED FOR UNKNOWN INDICATION
     Dosage: 10 MG, UNK
     Route: 048
     Dates: start: 20120518, end: 201208
  2. INSULIN [Concomitant]

REACTIONS (4)
  - Diarrhoea [Unknown]
  - Blood glucose increased [Unknown]
  - Chest discomfort [Unknown]
  - Chest pain [Unknown]
